FAERS Safety Report 10143989 (Version 1)
Quarter: 2014Q2

REPORT INFORMATION
  Report Type: Other
  Country: IT (occurrence: IT)
  Receive Date: 20140430
  Receipt Date: 20140430
  Transmission Date: 20141212
  Serious: Yes (Death)
  Sender: FDA-Public Use
  Company Number: IT-BRISTOL-MYERS SQUIBB COMPANY-20659199

PATIENT
  Sex: 0

DRUGS (2)
  1. ENTECAVIR [Suspect]
     Indication: HEPATITIS B
  2. LAMIVUDINE [Suspect]
     Indication: HEPATITIS B

REACTIONS (1)
  - Drug ineffective [Fatal]
